FAERS Safety Report 7846731-2 (Version None)
Quarter: 2011Q4

REPORT INFORMATION
  Report Type: 
  Country: None (occurrence: None)
  Receive Date: 20111025
  Receipt Date: 20111018
  Transmission Date: 20120403
  Serious: Yes (Other)
  Sender: FDA-Public Use
  Company Number: PHEH2010US00483

PATIENT
  Sex: Female

DRUGS (17)
  1. MORPHINE [Concomitant]
  2. METFORMIN HCL [Concomitant]
  3. LOPRESSOR [Concomitant]
  4. LANTUS [Concomitant]
  5. ZOMETA [Suspect]
  6. ASPIRIN [Concomitant]
  7. ATIVAN [Concomitant]
  8. FEMARA [Concomitant]
  9. PERCOCET [Concomitant]
  10. HYDROCORTISONE [Concomitant]
  11. DEMEROL [Concomitant]
  12. IBUPROFEN [Concomitant]
  13. REGLAN [Concomitant]
  14. AMBIEN [Concomitant]
  15. LISINOPRIL [Concomitant]
  16. FULVESTRANT [Concomitant]
  17. ONDANSETRON [Concomitant]

REACTIONS (20)
  - PAIN [None]
  - SUBCUTANEOUS ABSCESS [None]
  - PROTHROMBIN TIME PROLONGED [None]
  - DYSPHONIA [None]
  - TOOTHACHE [None]
  - METASTASES TO BONE [None]
  - LUNG NEOPLASM [None]
  - OSTEONECROSIS OF JAW [None]
  - GENERAL PHYSICAL HEALTH DETERIORATION [None]
  - HYPERTENSION [None]
  - SPINAL OSTEOARTHRITIS [None]
  - COMPRESSION FRACTURE [None]
  - ANXIETY [None]
  - OSTEOMYELITIS [None]
  - DIABETES MELLITUS [None]
  - AXILLARY MASS [None]
  - DECREASED INTEREST [None]
  - BREAST CANCER METASTATIC [None]
  - DIZZINESS [None]
  - IMPAIRED HEALING [None]
